FAERS Safety Report 5875885-2 (Version None)
Quarter: 2008Q3

REPORT INFORMATION
  Report Type: 
  Country: None (occurrence: None)
  Receive Date: 20080905
  Receipt Date: 20080821
  Transmission Date: 20090109
  Serious: Yes (Other)
  Sender: FDA-Public Use
  Company Number: DSJ-2008-04760

PATIENT
  Age: 60 Year
  Sex: Male
  Weight: 60 kg

DRUGS (5)
  1. OLMESARTAN MEDOXOMIL [Suspect]
     Indication: HYPERTENSION
     Dosage: 20 MG  (1 IN 1 D), PER ORAL
     Route: 048
     Dates: start: 20040101, end: 20080416
  2. LASIX [Concomitant]
  3. VERAPAMIL HYDROCHLORIDE [Concomitant]
  4. WARFARIN SODIUM [Concomitant]
  5. LANIRAPID (METILDIGOXIN) (METILDIGOXIN) [Concomitant]

REACTIONS (10)
  - ATRIAL FIBRILLATION [None]
  - CARDIAC FAILURE CONGESTIVE [None]
  - CARDIOMEGALY [None]
  - HEART RATE INCREASED [None]
  - LIVER FUNCTION TEST ABNORMAL [None]
  - MALAISE [None]
  - OEDEMA [None]
  - PROTEIN URINE PRESENT [None]
  - RENAL FUNCTION TEST ABNORMAL [None]
  - TREATMENT NONCOMPLIANCE [None]
